FAERS Safety Report 26180150 (Version 1)
Quarter: 2025Q4

REPORT INFORMATION
  Report Type: Report from Study
  Country: US (occurrence: US)
  Receive Date: 20251219
  Receipt Date: 20251219
  Transmission Date: 20260118
  Serious: Yes (Other)
  Sender: OTSUKA
  Company Number: US-MMM-Otsuka-ZRCN1EYD

PATIENT
  Age: 22 Year
  Sex: Male

DRUGS (2)
  1. TOLVAPTAN [Suspect]
     Active Substance: TOLVAPTAN
     Indication: Congenital cystic kidney disease
     Dosage: UNK
     Route: 065
  2. TOLVAPTAN [Suspect]
     Active Substance: TOLVAPTAN
     Dosage: 15 MG, BID
     Route: 061
     Dates: start: 20250418, end: 20250501

REACTIONS (9)
  - Neoplasm malignant [Unknown]
  - Hyperhidrosis [Unknown]
  - Hot flush [Unknown]
  - Vomiting [Not Recovered/Not Resolved]
  - Polydipsia [Unknown]
  - Thirst [Not Recovered/Not Resolved]
  - Polyuria [Not Recovered/Not Resolved]
  - Dizziness [Not Recovered/Not Resolved]
  - Underdose [Unknown]

NARRATIVE: CASE EVENT DATE: 20250418
